FAERS Safety Report 6452800-4 (Version None)
Quarter: 2009Q4

REPORT INFORMATION
  Report Type: 
  Country: None (occurrence: None)
  Receive Date: 20091124
  Receipt Date: 20091111
  Transmission Date: 20100525
  Serious: Yes (Other)
  Sender: FDA-Public Use
  Company Number: BR-EISAI INC.-E3810-03306-SPO-BR

PATIENT
  Age: 39 Year
  Sex: Female
  Weight: 59 kg

DRUGS (1)
  1. PARIET (RABEPRAZOLE) [Suspect]
     Route: 048
     Dates: start: 20091001, end: 20091110

REACTIONS (4)
  - DYSURIA [None]
  - INSOMNIA [None]
  - NERVOUSNESS [None]
  - URINARY TRACT INFECTION [None]
